FAERS Safety Report 4519567-8 (Version None)
Quarter: 2005Q1

REPORT INFORMATION
  Report Type: 
  Country: None (occurrence: None)
  Receive Date: 20041101
  Receipt Date: 20031003
  Transmission Date: 20050727
  Serious: Yes (Hospitalization, Other)
  Sender: FDA-Public Use
  Company Number: HQ5801016DEC2002

PATIENT
  Age: 42 Year
  Sex: Female
  Weight: 79.45 kg

DRUGS (4)
  1. PREMARIN [Suspect]
     Indication: OESTROGEN REPLACEMENT THERAPY
     Dosage: 1.25 DAILY FOR 23 OR 25 DAYS PER MONTH, ORAL; 0.625 MG DAILY FOR 23 OR 25 DAYS PER MONTH, ORAL
     Route: 048
     Dates: start: 19870501, end: 19890101
  2. PREMARIN [Suspect]
     Indication: OESTROGEN REPLACEMENT THERAPY
     Dosage: 1.25 DAILY FOR 23 OR 25 DAYS PER MONTH, ORAL; 0.625 MG DAILY FOR 23 OR 25 DAYS PER MONTH, ORAL
     Route: 048
     Dates: start: 19890101, end: 19930101
  3. INSULIN HUMULIN L (INSULIN HUMAN ZINC SUSPENSION) [Concomitant]
  4. HUMULIN REGULAR (INSULIN HUMAN) [Concomitant]

REACTIONS (1)
  - BREAST CANCER FEMALE [None]
